FAERS Safety Report 9382693 (Version 2)
Quarter: 2013Q4

REPORT INFORMATION
  Report Type: Spontaneous
  Country: PL (occurrence: PL)
  Receive Date: 20130703
  Receipt Date: 20131007
  Transmission Date: 20140711
  Serious: No
  Sender: FDA-Public Use
  Company Number: PL-GLAXOSMITHKLINE-B0904796A

PATIENT
  Age: 1 Year
  Sex: Male

DRUGS (1)
  1. ZINNAT [Suspect]
     Indication: UPPER RESPIRATORY TRACT INFECTION
     Route: 048
     Dates: start: 20130625

REACTIONS (3)
  - Rash pustular [Recovered/Resolved]
  - Somnolence [Recovered/Resolved]
  - Decreased appetite [Recovered/Resolved]
